FAERS Safety Report 5824772-4 (Version None)
Quarter: 2008Q3

REPORT INFORMATION
  Report Type: 
  Country: None (occurrence: None)
  Receive Date: 20080728
  Receipt Date: 20080717
  Transmission Date: 20090109
  Serious: Yes (Life-Threatening, Hospitalization)
  Sender: FDA-Public Use
  Company Number: JP-SANOFI-SYNTHELABO-A01200808235

PATIENT
  Sex: Female
  Weight: 53.5 kg

DRUGS (8)
  1. ADALAT [Concomitant]
  2. MOBIC [Concomitant]
  3. CANDESARTAN CILEXETIL [Concomitant]
  4. OXYCONTIN [Concomitant]
  5. LEUCOVORIN CALCIUM [Concomitant]
     Dates: start: 20070927, end: 20071220
  6. ELPLAT [Suspect]
     Indication: RECTAL CANCER METASTATIC
     Dosage: UNK
     Route: 041
     Dates: start: 20080622, end: 20080622
  7. FLUOROURACIL [Suspect]
     Indication: RECTAL CANCER METASTATIC
     Dosage: UNK
     Route: 041
     Dates: start: 20080622, end: 20080622
  8. AVASTIN [Suspect]
     Indication: RECTAL CANCER METASTATIC
     Route: 041
     Dates: start: 20080622, end: 20080622

REACTIONS (3)
  - GASTROINTESTINAL PERFORATION [None]
  - HYPERTENSION [None]
  - NAUSEA [None]
